FAERS Safety Report 7239509-4 (Version None)
Quarter: 2011Q1

REPORT INFORMATION
  Report Type: 
  Country: None (occurrence: None)
  Receive Date: 20110121
  Receipt Date: 20110111
  Transmission Date: 20110831
  Serious: Yes (Death, Hospitalization)
  Sender: FDA-Public Use
  Company Number: DE-GENENTECH-310724

PATIENT
  Sex: Male

DRUGS (8)
  1. PREDNISONE [Suspect]
     Indication: LYMPHOMA
     Dosage: 1 DF, QD
     Route: 042
     Dates: start: 20050221, end: 20050228
  2. RITUXIMAB [Suspect]
     Indication: LYMPHOMA
     Dosage: 600 MG, UNK
     Route: 042
     Dates: start: 20050301
  3. ADRIAMYCIN PFS [Suspect]
     Indication: LYMPHOMA
     Dosage: 85 MG, UNK
     Route: 042
     Dates: start: 20050301
  4. VINCRISTINE [Suspect]
     Indication: LYMPHOMA
     Dosage: 1 DF, QD
     Route: 042
     Dates: start: 20050221, end: 20050228
  5. DOXORUBICIN HCL [Suspect]
     Indication: LYMPHOMA
     Dosage: UNK
     Route: 042
  6. CYCLOPHOSPHAMIDE [Suspect]
     Indication: LYMPHOMA
     Dosage: 1250 MG, UNK
     Route: 042
     Dates: start: 20050301
  7. VINCRISTINE [Suspect]
     Dosage: 1 DF, QAM
     Route: 042
     Dates: start: 20050301, end: 20050302
  8. PREDNISONE [Suspect]
     Dosage: 500 MG, QD
     Route: 042
     Dates: start: 20050301, end: 20050302

REACTIONS (1)
  - SEPSIS [None]
